FAERS Safety Report 8026603-3 (Version None)
Quarter: 2012Q1

REPORT INFORMATION
  Report Type: 
  Country: None (occurrence: None)
  Receive Date: 20120106
  Receipt Date: 20111229
  Transmission Date: 20120608
  Serious: No
  Sender: FDA-Public Use
  Company Number: US-BIOGENIDEC-2011BI036340

PATIENT
  Sex: Female

DRUGS (1)
  1. TYSABRI [Suspect]
     Indication: MULTIPLE SCLEROSIS
     Route: 042
     Dates: start: 20110823, end: 20110921

REACTIONS (7)
  - DYSPNOEA [None]
  - CHILLS [None]
  - ABDOMINAL PAIN [None]
  - FEELING HOT [None]
  - PANIC ATTACK [None]
  - INFUSION RELATED REACTION [None]
  - NASOPHARYNGITIS [None]
